FAERS Safety Report 9219507 (Version 3)
Quarter: 2014Q1

REPORT INFORMATION
  Report Type: Spontaneous
  Country: US (occurrence: US)
  Receive Date: 20130409
  Receipt Date: 20140207
  Transmission Date: 20141002
  Serious: Yes (Hospitalization)
  Sender: FDA-Public Use
  Company Number: US-PFIZER INC-2013109867

PATIENT
  Age: 51 Year
  Sex: Female
  Weight: 58.05 kg

DRUGS (16)
  1. XELJANZ [Suspect]
     Indication: RHEUMATOID ARTHRITIS
     Dosage: 5 MG, 2X/DAY
     Route: 048
     Dates: start: 20130326, end: 20130401
  2. ENBREL [Suspect]
     Dosage: UNK
  3. METHOTREXATE [Concomitant]
     Indication: RHEUMATOID ARTHRITIS
     Dosage: 20 MG, WEEKLY
     Route: 048
     Dates: start: 2008
  4. FOLIC ACID [Concomitant]
     Dosage: UNK
  5. VICODIN [Concomitant]
     Dosage: UNK
  6. ZOLOFT [Concomitant]
     Indication: AFFECTIVE DISORDER
     Dosage: 100 MG, 1X/DAY (DAILY)
     Route: 048
     Dates: start: 200905
  7. CELEBREX [Concomitant]
     Dosage: 100 MG, 1X/DAY (DAILY)
     Route: 048
  8. CELEBREX [Concomitant]
     Dosage: 200 MG, 1X/DAY (DAILY)
  9. ZOFRAN [Concomitant]
     Dosage: 4 MG, (Q6H, Q8H)
     Route: 042
  10. DILAUDID [Concomitant]
     Dosage: 1 MG, UNK
     Route: 042
  11. SODIUM CHLORIDE [Concomitant]
     Dosage: 1000 ML, UNK
     Route: 042
  12. DECADRON [Concomitant]
     Dosage: 10 MG, UNK
     Route: 042
  13. REGLAN [Concomitant]
     Dosage: 10 MG, UNK
     Route: 042
  14. TORADOL [Concomitant]
     Dosage: 30 MG, UNK
     Route: 042
  15. BENADRYL [Concomitant]
     Dosage: 25 MG, UNK
     Route: 042
  16. ACETAMINOPHEN [Concomitant]
     Dosage: 650 MG, 1X/DAY (DAILY)
     Route: 048

REACTIONS (13)
  - Headache [Recovering/Resolving]
  - Electrocardiogram abnormal [Unknown]
  - Pain [Unknown]
  - Influenza [Unknown]
  - Pyrexia [Unknown]
  - Chills [Unknown]
  - Myalgia [Unknown]
  - Arthralgia [Unknown]
  - Vomiting [Unknown]
  - Nausea [Unknown]
  - Myofascial pain syndrome [Unknown]
  - Photophobia [Unknown]
  - Hyperhidrosis [Unknown]
